FAERS Safety Report 6052007-9 (Version None)
Quarter: 2009Q1

REPORT INFORMATION
  Report Type: 
  Country: None (occurrence: None)
  Receive Date: 20090122
  Receipt Date: 20090122
  Transmission Date: 20090719
  Serious: Yes (Hospitalization)
  Sender: FDA-Public Use
  Company Number: None

PATIENT
  Age: 91 Year
  Sex: Female
  Weight: 60 kg

DRUGS (6)
  1. BONIVA [Suspect]
     Indication: OSTEOARTHRITIS
     Dosage: 150MG MONTHLY PO
     Route: 048
     Dates: start: 20080301, end: 20081231
  2. ABILIFY [Concomitant]
  3. ZOLOFT [Concomitant]
  4. SINGULAIR [Concomitant]
  5. ALBUTEROL [Concomitant]
  6. FENTANYL-75 [Concomitant]

REACTIONS (5)
  - ABSCESS JAW [None]
  - OSTEOMYELITIS [None]
  - PAIN IN JAW [None]
  - SECONDARY SEQUESTRUM [None]
  - SWELLING [None]
